FAERS Safety Report 25662951 (Version 1)
Quarter: 2025Q3

REPORT INFORMATION
  Report Type: Spontaneous
  Country: CN (occurrence: CN)
  Receive Date: 20250811
  Receipt Date: 20250811
  Transmission Date: 20251021
  Serious: Yes (Hospitalization)
  Sender: ROCHE
  Company Number: CN-ROCHE-10000353946

PATIENT
  Age: 42 Year
  Sex: Female

DRUGS (40)
  1. PERTUZUMAB [Suspect]
     Active Substance: PERTUZUMAB
     Indication: Neoplasm malignant
     Route: 042
     Dates: start: 20250627, end: 20250627
  2. PERTUZUMAB [Suspect]
     Active Substance: PERTUZUMAB
     Indication: Neoplasm malignant
  3. PERTUZUMAB [Suspect]
     Active Substance: PERTUZUMAB
     Indication: Invasive ductal breast carcinoma
  4. PERTUZUMAB [Suspect]
     Active Substance: PERTUZUMAB
     Indication: Fibroadenoma of breast
  5. PERTUZUMAB [Suspect]
     Active Substance: PERTUZUMAB
     Indication: Hypertension
  6. PERTUZUMAB [Suspect]
     Active Substance: PERTUZUMAB
     Indication: Uterine leiomyoma
  7. PERTUZUMAB [Suspect]
     Active Substance: PERTUZUMAB
     Indication: Ovarian cyst
  8. PERTUZUMAB [Suspect]
     Active Substance: PERTUZUMAB
     Indication: Hepatic cyst
  9. PERTUZUMAB [Suspect]
     Active Substance: PERTUZUMAB
     Indication: Gallbladder disorder
  10. PERTUZUMAB [Suspect]
     Active Substance: PERTUZUMAB
     Indication: Breast cancer
  11. TRASTUZUMAB [Suspect]
     Active Substance: TRASTUZUMAB
     Indication: Neoplasm malignant
     Dosage: FIRST DOSE 8 MG/KG FOLLOWED BY 6 MG/KG EVERY DAY
     Route: 042
     Dates: start: 20250627, end: 20250627
  12. TRASTUZUMAB [Suspect]
     Active Substance: TRASTUZUMAB
     Indication: Neoplasm malignant
     Route: 065
  13. TRASTUZUMAB [Suspect]
     Active Substance: TRASTUZUMAB
     Indication: Invasive ductal breast carcinoma
  14. TRASTUZUMAB [Suspect]
     Active Substance: TRASTUZUMAB
     Indication: Fibroadenoma of breast
  15. TRASTUZUMAB [Suspect]
     Active Substance: TRASTUZUMAB
     Indication: Hypertension
  16. TRASTUZUMAB [Suspect]
     Active Substance: TRASTUZUMAB
     Indication: Uterine leiomyoma
  17. TRASTUZUMAB [Suspect]
     Active Substance: TRASTUZUMAB
     Indication: Ovarian cyst
  18. TRASTUZUMAB [Suspect]
     Active Substance: TRASTUZUMAB
     Indication: Hepatic cyst
  19. TRASTUZUMAB [Suspect]
     Active Substance: TRASTUZUMAB
     Indication: Gallbladder disorder
  20. TRASTUZUMAB [Suspect]
     Active Substance: TRASTUZUMAB
     Indication: Breast cancer
  21. PACLITAXEL [Suspect]
     Active Substance: PACLITAXEL
     Indication: Neoplasm malignant
     Route: 042
     Dates: start: 20250627, end: 20250627
  22. PACLITAXEL [Suspect]
     Active Substance: PACLITAXEL
     Indication: Neoplasm malignant
     Route: 042
  23. PACLITAXEL [Suspect]
     Active Substance: PACLITAXEL
     Indication: Invasive ductal breast carcinoma
  24. PACLITAXEL [Suspect]
     Active Substance: PACLITAXEL
     Indication: Fibroadenoma of breast
  25. PACLITAXEL [Suspect]
     Active Substance: PACLITAXEL
     Indication: Hypertension
  26. PACLITAXEL [Suspect]
     Active Substance: PACLITAXEL
     Indication: Uterine leiomyoma
  27. PACLITAXEL [Suspect]
     Active Substance: PACLITAXEL
     Indication: Ovarian cyst
  28. PACLITAXEL [Suspect]
     Active Substance: PACLITAXEL
     Indication: Hepatic cyst
  29. PACLITAXEL [Suspect]
     Active Substance: PACLITAXEL
     Indication: Gallbladder disorder
  30. PACLITAXEL [Suspect]
     Active Substance: PACLITAXEL
     Indication: Breast cancer
  31. CARBOPLATIN [Suspect]
     Active Substance: CARBOPLATIN
     Indication: Neoplasm malignant
     Route: 042
     Dates: start: 20250627, end: 20250627
  32. CARBOPLATIN [Suspect]
     Active Substance: CARBOPLATIN
     Indication: Neoplasm malignant
  33. CARBOPLATIN [Suspect]
     Active Substance: CARBOPLATIN
     Indication: Invasive ductal breast carcinoma
  34. CARBOPLATIN [Suspect]
     Active Substance: CARBOPLATIN
     Indication: Fibroadenoma of breast
  35. CARBOPLATIN [Suspect]
     Active Substance: CARBOPLATIN
     Indication: Hypertension
  36. CARBOPLATIN [Suspect]
     Active Substance: CARBOPLATIN
     Indication: Uterine leiomyoma
  37. CARBOPLATIN [Suspect]
     Active Substance: CARBOPLATIN
     Indication: Ovarian cyst
  38. CARBOPLATIN [Suspect]
     Active Substance: CARBOPLATIN
     Indication: Hepatic cyst
  39. CARBOPLATIN [Suspect]
     Active Substance: CARBOPLATIN
     Indication: Gallbladder disorder
  40. CARBOPLATIN [Suspect]
     Active Substance: CARBOPLATIN
     Indication: Breast cancer

REACTIONS (1)
  - Transaminases increased [Recovering/Resolving]

NARRATIVE: CASE EVENT DATE: 20250717
